FAERS Safety Report 9221840 (Version 1)
Quarter: 2013Q1

REPORT INFORMATION
  Report Type: Spontaneous
  Country: US (occurrence: None)
  Receive Date: 20120905
  Receipt Date: 20120905
  Transmission Date: 20140127
  Serious: Yes (Other)
  Sender: FDA-Public Use
  Company Number: AUR-APL-2011-05818

PATIENT
  Age: 60 Year
  Sex: Female
  Weight: 95.2 kg

DRUGS (4)
  1. AMLODIPINE (AMLODIPINE) [Suspect]
     Indication: PRODUCT USED FOR UNKNOWN INDICATION
  2. SEPTRA [Suspect]
  3. BIAXIN [Suspect]
  4. IODINE [Suspect]

REACTIONS (1)
  - Drug hypersensitivity [None]
